FAERS Safety Report 6060088-1 (Version None)
Quarter: 2009Q1

REPORT INFORMATION
  Report Type: 
  Country: None (occurrence: None)
  Receive Date: 20090127
  Receipt Date: 20090113
  Transmission Date: 20090719
  Serious: Yes (Hospitalization, Other)
  Sender: FDA-Public Use
  Company Number: DSU-2008-00463

PATIENT
  Age: 76 Year
  Sex: Female

DRUGS (6)
  1. OLMETEC (OLMESARTAN MEDOXOMIL) (20 MILLIGRAM, TABLET) (OLMESARTAN MEDO [Suspect]
     Indication: HYPERTENSION
     Dosage: 40 MG (20 MG, BID) ,PER ORAL
     Route: 048
     Dates: start: 20030326
  2. ATORVASTATIN (ATORVASTATIN) (TABLET) (ATORVASTATIN) [Suspect]
     Indication: BLOOD CHOLESTEROL
     Dosage: 20 MG (20 MG, QD) ,PER ORAL
     Route: 048
     Dates: start: 20081201
  3. SELOZOK (METOPROLOL SUCCINATE) (METOPROLOL SUCCINATE) [Concomitant]
  4. PURAN T4 (LEVOTHYROXINE SODIUM) (LEVOTHYROXINE SODIUM) [Concomitant]
  5. MICARDIS [Concomitant]
  6. AMETRIL (UNSPECIFIED MEDICINE) [Concomitant]

REACTIONS (3)
  - CEREBROVASCULAR ACCIDENT [None]
  - EYE HAEMORRHAGE [None]
  - VISION BLURRED [None]
